FAERS Safety Report 7366930-6 (Version None)
Quarter: 2011Q1

REPORT INFORMATION
  Report Type: 
  Country: None (occurrence: None)
  Receive Date: 20110322
  Receipt Date: 20110315
  Transmission Date: 20110831
  Serious: Yes (Death)
  Sender: FDA-Public Use
  Company Number: B0706829A

PATIENT
  Sex: Male

DRUGS (7)
  1. SOL-MELCORT [Concomitant]
     Dosage: 2IUAX PER DAY
     Route: 042
     Dates: start: 20110228, end: 20110302
  2. MYSLEE [Concomitant]
     Indication: INSOMNIA
     Dosage: 1IUAX PER DAY
     Route: 048
     Dates: start: 20110228
  3. SERENACE [Concomitant]
     Indication: RESTLESSNESS
     Dosage: 1IUAX PER DAY
     Dates: start: 20110228
  4. MEROPEN [Concomitant]
     Route: 042
     Dates: start: 20110228, end: 20110309
  5. ROHYPNOL [Concomitant]
     Dosage: 1IUAX PER DAY
     Route: 048
     Dates: start: 20110301, end: 20110306
  6. ROCEPHIN [Concomitant]
     Dosage: 2IUAX PER DAY
     Route: 042
     Dates: start: 20110225, end: 20110228
  7. PAXIL [Suspect]
     Indication: DEPRESSION
     Dosage: 20MG PER DAY
     Route: 048
     Dates: start: 20110228, end: 20110306

REACTIONS (8)
  - DEPRESSED LEVEL OF CONSCIOUSNESS [None]
  - GRAND MAL CONVULSION [None]
  - BLOOD CREATINE PHOSPHOKINASE INCREASED [None]
  - TREMOR [None]
  - AGITATION [None]
  - PYREXIA [None]
  - NEUROLEPTIC MALIGNANT SYNDROME [None]
  - COLD SWEAT [None]
